FAERS Safety Report 6921114-8 (Version None)
Quarter: 2010Q3

REPORT INFORMATION
  Report Type: 
  Country: None (occurrence: None)
  Receive Date: 20100812
  Receipt Date: 20100806
  Transmission Date: 20110219
  Serious: Yes (Other)
  Sender: FDA-Public Use
  Company Number: TR-WYE-H15558310

PATIENT
  Age: 26 Year
  Sex: Female

DRUGS (2)
  1. EFFEXOR [Suspect]
     Indication: MAJOR DEPRESSION
     Dosage: 37.5 MG, FREQUENCY UNSPECIFIED
     Route: 048
  2. EFFEXOR [Suspect]
     Dosage: 150 MG, FREQUENCY UNSPECIFIED
     Route: 048

REACTIONS (4)
  - BRADYCARDIA [None]
  - PERIPHERAL COLDNESS [None]
  - SKIN DISCOLOURATION [None]
  - URINARY TRACT INFECTION [None]
